FAERS Safety Report 5929469-8 (Version None)
Quarter: 2008Q4

REPORT INFORMATION
  Report Type: 
  Country: None (occurrence: None)
  Receive Date: 20081024
  Receipt Date: 20081017
  Transmission Date: 20090506
  Serious: Yes (Hospitalization)
  Sender: FDA-Public Use
  Company Number: GB-AVENTIS-200710193GDDC

PATIENT
  Age: 19 Year
  Sex: Male

DRUGS (2)
  1. METRONIDAZOLE [Suspect]
     Route: 042
     Dates: start: 20061108, end: 20061111
  2. ACETAMINOPHEN [Concomitant]

REACTIONS (1)
  - LEUKOPENIA [None]
